FAERS Safety Report 11124168 (Version 1)
Quarter: 2015Q2

REPORT INFORMATION
  Report Type: Spontaneous
  Country: US (occurrence: None)
  Receive Date: 20150519
  Receipt Date: 20150519
  Transmission Date: 20150821
  Serious: Yes (Disabling)
  Sender: FDA-Public Use
  Company Number: None

PATIENT
  Age: 53 Year
  Sex: Female
  Weight: 56.7 kg

DRUGS (1)
  1. COMBIGAN [Suspect]
     Active Substance: BRIMONIDINE TARTRATE\TIMOLOL MALEATE
     Indication: GLAUCOMA
     Dosage: STRENGTH:  0.2/0.5%, 1 DROP PER EYE TWICE DAILY, 2X DAILY, EYE DROPS FOR GLAUCOMA
     Dates: start: 20150213, end: 20150420

REACTIONS (1)
  - Pruritus [None]

NARRATIVE: CASE EVENT DATE: 20150314
